FAERS Safety Report 23788914 (Version 1)
Quarter: 2024Q2

REPORT INFORMATION
  Report Type: Spontaneous
  Country: US (occurrence: None)
  Receive Date: 20240425
  Receipt Date: 20240425
  Transmission Date: 20240715
  Serious: Yes (Disabling)
  Sender: FDA-Public Use
  Company Number: None

PATIENT
  Age: 50 Year
  Sex: Female
  Weight: 62.55 kg

DRUGS (10)
  1. AJOVY [Suspect]
     Active Substance: FREMANEZUMAB-VFRM
     Indication: Migraine
     Dosage: 1 INJECTION ONCE A MONTH SUBCUTANEOUS?
     Route: 058
  2. PRISTIQ EXTENDED-RELEASE [Concomitant]
     Active Substance: DESVENLAFAXINE SUCCINATE
  3. AMBIEN [Concomitant]
     Active Substance: ZOLPIDEM TARTRATE
  4. botox (for migraine) [Concomitant]
  5. LEVOTHYROXINE [Concomitant]
     Active Substance: LEVOTHYROXINE\LEVOTHYROXINE SODIUM
  6. SUMATRIPTAN [Concomitant]
     Active Substance: SUMATRIPTAN
  7. MAGNESIUM [Concomitant]
     Active Substance: MAGNESIUM
  8. muti-vitamin [Concomitant]
  9. B12 [Concomitant]
  10. VITAMIN D [Concomitant]
     Active Substance: VITAMIN D NOS

REACTIONS (18)
  - Nausea [None]
  - Vomiting [None]
  - Dehydration [None]
  - Brain fog [None]
  - Fatigue [None]
  - Myalgia [None]
  - Arthralgia [None]
  - Pain in jaw [None]
  - Arthralgia [None]
  - Arthralgia [None]
  - Back pain [None]
  - Arthralgia [None]
  - Abnormal dreams [None]
  - Palpitations [None]
  - Anxiety [None]
  - Hypoaesthesia [None]
  - Hypoaesthesia [None]
  - Emotional distress [None]

NARRATIVE: CASE EVENT DATE: 20240221
